FAERS Safety Report 5764132-8 (Version None)
Quarter: 2008Q2

REPORT INFORMATION
  Report Type: 
  Country: None (occurrence: None)
  Receive Date: 20080604
  Receipt Date: 20080520
  Transmission Date: 20081010
  Serious: Yes (Death, Hospitalization)
  Sender: FDA-Public Use
  Company Number: 2008AL005592

PATIENT
  Age: 77 Year
  Sex: Female
  Weight: 52.1637 kg

DRUGS (2)
  1. DIGOXIN [Suspect]
     Indication: CARDIAC DISORDER
     Dosage: 0.125 MG DAILY, PO YEARS
     Route: 048
  2. CHEMO-THERAPY [Concomitant]

REACTIONS (2)
  - GASTRIC DISORDER [None]
  - MYOCARDIAL INFARCTION [None]
